FAERS Safety Report 24777751 (Version 1)
Quarter: 2024Q4

REPORT INFORMATION
  Report Type: Spontaneous
  Country: US (occurrence: US)
  Receive Date: 20241226
  Receipt Date: 20241226
  Transmission Date: 20250115
  Serious: No
  Sender: CELLTRION
  Company Number: US-CELLTRION INC.-2024US019029

PATIENT

DRUGS (2)
  1. RITUXIMAB [Suspect]
     Active Substance: RITUXIMAB
     Indication: Glomerulonephritis membranous
  2. WARFARIN [Concomitant]
     Active Substance: WARFARIN
     Indication: Glomerulonephritis membranous

REACTIONS (1)
  - Drug effective for unapproved indication [Unknown]
